FAERS Safety Report 8915401 (Version 1)
Quarter: 2012Q4

REPORT INFORMATION
  Report Type: 
  Country: US (occurrence: US)
  Receive Date: 20121119
  Receipt Date: 20121119
  Transmission Date: 20130627
  Serious: No
  Sender: FDA-Public Use
  Company Number: US-PFIZER INC-2012288413

PATIENT
  Sex: Female

DRUGS (3)
  1. LYRICA [Suspect]
     Indication: MULTIPLE SCLEROSIS
     Dosage: UNK
  2. LYRICA [Suspect]
     Dosage: 75 mg, daily
  3. LYRICA [Suspect]
     Dosage: 75 mg, 3x/day

REACTIONS (3)
  - Diarrhoea [Unknown]
  - Pain [Unknown]
  - Off label use [Unknown]
